FAERS Safety Report 19587498 (Version 1)
Quarter: 2021Q3

REPORT INFORMATION
  Report Type: Spontaneous
  Country: US (occurrence: US)
  Receive Date: 20210720
  Receipt Date: 20210720
  Transmission Date: 20211014
  Serious: Yes (Disabling)
  Sender: FDA-Public Use
  Company Number: None

PATIENT
  Age: 51 Year
  Sex: Female
  Weight: 63 kg

DRUGS (6)
  1. VITAMIN D [Concomitant]
     Active Substance: VITAMIN D NOS
  2. RABEPRAZOLE SODIUM DELAYED RELEASE TABLETS [Suspect]
     Active Substance: RABEPRAZOLE SODIUM
     Indication: GASTROOESOPHAGEAL REFLUX DISEASE
     Dosage: ?          QUANTITY:1 TABLET(S);?
     Route: 048
     Dates: start: 20200607, end: 20200811
  3. VITAMIN E [Concomitant]
     Active Substance: .ALPHA.-TOCOPHEROL
  4. MULTIVITAMIN [Concomitant]
     Active Substance: VITAMINS
  5. CHLORELLA [Concomitant]
     Active Substance: DIETARY SUPPLEMENT
  6. VITAMINS [Concomitant]
     Active Substance: VITAMINS

REACTIONS (4)
  - Peripheral swelling [None]
  - Arthralgia [None]
  - Pain in extremity [None]
  - Joint swelling [None]

NARRATIVE: CASE EVENT DATE: 20200611
